FAERS Safety Report 12455192 (Version 1)
Quarter: 2016Q2

REPORT INFORMATION
  Report Type: Spontaneous
  Country: US (occurrence: None)
  Receive Date: 20160609
  Receipt Date: 20160609
  Transmission Date: 20160815
  Serious: No
  Sender: FDA-Public Use
  Company Number: None

PATIENT

DRUGS (2)
  1. AMLODIPINE AMLODIPINE 5 [Suspect]
     Active Substance: AMLODIPINE BESYLATE
  2. CLONIDINE CLONIDINE PATCH [Suspect]
     Active Substance: CLONIDINE
     Route: 048

REACTIONS (3)
  - Scleral haemorrhage [None]
  - Circumstance or information capable of leading to medication error [None]
  - Hypertension [None]
